FAERS Safety Report 14688674 (Version 1)
Quarter: 2018Q1

REPORT INFORMATION
  Report Type: Spontaneous
  Country: JP (occurrence: JP)
  Receive Date: 20180328
  Receipt Date: 20180328
  Transmission Date: 20180509
  Serious: Yes (Hospitalization)
  Sender: FDA-Public Use
  Company Number: JP-MYLANLABS-2018M1021001

PATIENT
  Age: 16 Year
  Sex: Male
  Weight: 83 kg

DRUGS (2)
  1. CABERGOLINE. [Suspect]
     Active Substance: CABERGOLINE
     Indication: PROLACTIN-PRODUCING PITUITARY TUMOUR
  2. CABERGOLINE. [Suspect]
     Active Substance: CABERGOLINE
     Indication: GANGLIONEUROMA
     Route: 048

REACTIONS (1)
  - Drug resistance [Unknown]
